FAERS Safety Report 8461530-9 (Version None)
Quarter: 2012Q2

REPORT INFORMATION
  Report Type: 
  Country: None (occurrence: None)
  Receive Date: 20120615
  Receipt Date: 20120613
  Transmission Date: 20120825
  Serious: Yes (Hospitalization, Other)
  Sender: FDA-Public Use
  Company Number: ADR-2012-01011

PATIENT
  Age: 51 Year
  Sex: Male

DRUGS (12)
  1. ASPIRIN [Concomitant]
  2. SITAGLIPTIN [Concomitant]
  3. DIPYRIDAMOLE [Concomitant]
  4. BACLOFEN [Suspect]
     Indication: DRUG THERAPY
     Dosage: 68.8 MCG/DAY,
  5. FOLIC ACID [Concomitant]
  6. SIMVASTATIN [Concomitant]
  7. ACETAMINOPHEN AND CODEINE PHOSPHATE [Concomitant]
  8. TIZANDINE [Concomitant]
  9. VITAMIN B COMPLEX CAP [Concomitant]
  10. ALBUTEROL SULATE [Concomitant]
  11. RAMIPRIL [Concomitant]
  12. METFORMIN HCL [Concomitant]

REACTIONS (9)
  - CONDITION AGGRAVATED [None]
  - URINARY TRACT INFECTION [None]
  - MUSCLE STRAIN [None]
  - MEDICAL DEVICE COMPLICATION [None]
  - NERVE COMPRESSION [None]
  - MUSCLE SPASTICITY [None]
  - ILEUS [None]
  - INFLUENZA [None]
  - MUSCULAR WEAKNESS [None]
